FAERS Safety Report 19216236 (Version 2)
Quarter: 2021Q2

REPORT INFORMATION
  Report Type: Spontaneous
  Country: GB (occurrence: GB)
  Receive Date: 20210505
  Receipt Date: 20210524
  Transmission Date: 20210717
  Serious: Yes (Other)
  Sender: FDA-Public Use
  Company Number: GB-TEVA-2021-GB-1906829

PATIENT
  Age: 35 Year
  Sex: Female
  Weight: 51.71 kg

DRUGS (3)
  1. NITROFURANTOIN. [Concomitant]
     Active Substance: NITROFURANTOIN
     Indication: ILL-DEFINED DISORDER
     Dosage: TWO WEEKS PRIOR
  2. TRIMETHOPRIM. [Suspect]
     Active Substance: TRIMETHOPRIM
     Indication: URINARY TRACT INFECTION
     Dosage: 200MG
     Route: 048
     Dates: start: 20210421, end: 20210424
  3. NITROFURANTOIN. [Concomitant]
     Active Substance: NITROFURANTOIN
     Indication: URINARY TRACT INFECTION

REACTIONS (16)
  - Tension [Unknown]
  - Chest discomfort [Unknown]
  - Muscle tightness [Unknown]
  - Anxiety [Not Recovered/Not Resolved]
  - Nausea [Unknown]
  - Fatigue [Recovering/Resolving]
  - Throat tightness [Unknown]
  - Dissociation [Unknown]
  - Dizziness [Unknown]
  - Muscle twitching [Unknown]
  - Tremor [Unknown]
  - Arthralgia [Unknown]
  - Bruxism [Unknown]
  - Somnolence [Unknown]
  - Tearfulness [Unknown]
  - Myalgia [Unknown]

NARRATIVE: CASE EVENT DATE: 20210422
